FAERS Safety Report 19269896 (Version 2)
Quarter: 2021Q2

REPORT INFORMATION
  Report Type: Spontaneous
  Country: AR (occurrence: AR)
  Receive Date: 20210518
  Receipt Date: 20210528
  Transmission Date: 20210717
  Serious: Yes (Other)
  Sender: FDA-Public Use
  Company Number: NVSC2021AR108830

PATIENT
  Age: 66 Year
  Sex: Female

DRUGS (5)
  1. GALVUS MET [Suspect]
     Active Substance: METFORMIN HYDROCHLORIDE\VILDAGLIPTIN
     Dosage: 2 DF, QD (ONE AT LUNCH AND ONE AT DINNER), STARTED APPROXIMATELY 10 YEARS AGO
     Route: 065
  2. OMEPRAZOLE. [Concomitant]
     Active Substance: OMEPRAZOLE
     Indication: PRODUCT USED FOR UNKNOWN INDICATION
     Dosage: 1 DF, QDDAILY IN FASTING
     Route: 065
  3. GALVUS MET [Suspect]
     Active Substance: METFORMIN HYDROCHLORIDE\VILDAGLIPTIN
     Indication: TYPE 2 DIABETES MELLITUS
     Dosage: 2 DF (OF 50/1000), QD, STARTED 13 YEARS AGO APPROXIMATELY
     Route: 065
  4. ROGASTRIL [Concomitant]
     Indication: PRODUCT USED FOR UNKNOWN INDICATION
     Dosage: 2 DF, BID 1 TABLET BEFORE LUNCH ANOTHER BEFORE DINNER
     Route: 065
  5. AMPLIAR [Concomitant]
     Indication: BLOOD CHOLESTEROL ABNORMAL
     Dosage: 0.5 DF, QD
     Route: 065

REACTIONS (23)
  - Glossitis [Unknown]
  - Discomfort [Unknown]
  - Weight decreased [Unknown]
  - Oesophagitis [Unknown]
  - Gastrointestinal inflammation [Unknown]
  - Lip swelling [Unknown]
  - Swelling face [Unknown]
  - Pain [Unknown]
  - Movement disorder [Unknown]
  - Abdominal pain [Unknown]
  - Blood glucose decreased [Unknown]
  - Illness [Unknown]
  - Swelling [Not Recovered/Not Resolved]
  - Noninfective gingivitis [Unknown]
  - Dysphagia [Unknown]
  - Gastrooesophageal reflux disease [Unknown]
  - Vitamin B12 abnormal [Unknown]
  - Pharyngitis [Unknown]
  - Diarrhoea [Unknown]
  - Umbilical hernia [Unknown]
  - Gastritis [Unknown]
  - Blood potassium abnormal [Unknown]
  - Dysgeusia [Unknown]

NARRATIVE: CASE EVENT DATE: 202003
